FAERS Safety Report 14391652 (Version 2)
Quarter: 2018Q1

REPORT INFORMATION
  Report Type: Other
  Country: DE (occurrence: DE)
  Receive Date: 20180116
  Receipt Date: 20180208
  Transmission Date: 20180509
  Serious: Yes (Hospitalization, Other)
  Sender: FDA-Public Use
  Company Number: DE-RARE DISEASE THERAPEUTICS, INC.-2040093

PATIENT
  Age: 34 Month
  Sex: Male
  Weight: 12.2 kg

DRUGS (65)
  1. CYTARABINE. [Suspect]
     Active Substance: CYTARABINE
     Route: 042
  2. CYTARABINE. [Suspect]
     Active Substance: CYTARABINE
     Route: 042
     Dates: start: 20151109, end: 20151112
  3. CYTARABINE. [Suspect]
     Active Substance: CYTARABINE
     Route: 042
     Dates: start: 20151221
  4. CYTARABINE. [Suspect]
     Active Substance: CYTARABINE
     Route: 065
     Dates: start: 20160811
  5. ASPARAGINASE [Suspect]
     Active Substance: ASPARAGINASE
     Route: 042
     Dates: start: 20160306
  6. ASPARAGINASE [Suspect]
     Active Substance: ASPARAGINASE
     Route: 042
     Dates: start: 20160620
  7. DOXORUBICIN [Suspect]
     Active Substance: DOXORUBICIN
     Route: 042
     Dates: start: 20160324
  8. DOXORUBICIN [Suspect]
     Active Substance: DOXORUBICIN
     Route: 042
  9. METHOTREXATE. [Suspect]
     Active Substance: METHOTREXATE
     Route: 065
     Dates: start: 20160208
  10. METHOTREXATE. [Suspect]
     Active Substance: METHOTREXATE
     Route: 042
     Dates: start: 20151218, end: 20151219
  11. CYCLOPHOSPHAMIDE. [Suspect]
     Active Substance: CYCLOPHOSPHAMIDE
     Route: 042
     Dates: start: 20160730, end: 20160730
  12. VINDESINE [Suspect]
     Active Substance: VINDESINE
     Route: 042
     Dates: start: 20160114
  13. DAUNORUBICIN [Suspect]
     Active Substance: DAUNORUBICIN
     Route: 065
  14. ETOPOSIDE. [Suspect]
     Active Substance: ETOPOSIDE
     Route: 065
  15. CYTARABINE. [Suspect]
     Active Substance: CYTARABINE
     Route: 042
     Dates: start: 20151102, end: 20151105
  16. CYTARABINE. [Suspect]
     Active Substance: CYTARABINE
     Route: 042
  17. ASPARAGINASE [Suspect]
     Active Substance: ASPARAGINASE
     Route: 042
     Dates: start: 20151223, end: 20151223
  18. VINCRISTINE [Suspect]
     Active Substance: VINCRISTINE
     Route: 042
     Dates: start: 20160620
  19. IFOSFAMIDE. [Suspect]
     Active Substance: IFOSFAMIDE
     Route: 065
  20. ASPARAGINASE [Suspect]
     Active Substance: ASPARAGINASE
     Route: 042
     Dates: start: 20160313
  21. CYCLOPHOSPHAMIDE. [Suspect]
     Active Substance: CYCLOPHOSPHAMIDE
     Route: 042
     Dates: start: 20160416, end: 20160416
  22. DAUNORUBICIN [Suspect]
     Active Substance: DAUNORUBICIN
     Route: 065
  23. CYTARABINE. [Suspect]
     Active Substance: CYTARABINE
     Route: 042
     Dates: start: 20160204, end: 20160206
  24. CYTARABINE. [Suspect]
     Active Substance: CYTARABINE
     Route: 042
  25. ASPARAGINASE [Suspect]
     Active Substance: ASPARAGINASE
     Route: 042
     Dates: start: 20160209, end: 20160209
  26. DOXORUBICIN [Suspect]
     Active Substance: DOXORUBICIN
     Route: 042
     Dates: start: 20160704
  27. CYCLOPHOSPHAMIDE. [Suspect]
     Active Substance: CYCLOPHOSPHAMIDE
     Route: 042
     Dates: start: 20151203, end: 20151203
  28. ASPARAGINASE [Suspect]
     Active Substance: ASPARAGINASE
     Route: 042
     Dates: start: 20160303
  29. ASPARAGINASE [Suspect]
     Active Substance: ASPARAGINASE
     Route: 042
  30. METHOTREXATE. [Suspect]
     Active Substance: METHOTREXATE
     Route: 048
     Dates: start: 20160913
  31. IFOSFAMIDE. [Suspect]
     Active Substance: IFOSFAMIDE
     Route: 042
     Dates: start: 20160115, end: 20160117
  32. CYCLOPHOSPHAMIDE. [Suspect]
     Active Substance: CYCLOPHOSPHAMIDE
     Route: 042
     Dates: start: 20151017, end: 20151017
  33. VINCRISTINE [Suspect]
     Active Substance: VINCRISTINE
     Route: 042
     Dates: start: 20151223, end: 20151223
  34. CYTARABINE. [Suspect]
     Active Substance: CYTARABINE
     Route: 042
  35. ASPARAGINASE [Suspect]
     Active Substance: ASPARAGINASE
     Route: 042
  36. ASPARAGINASE [Suspect]
     Active Substance: ASPARAGINASE
     Route: 042
     Dates: start: 20160310
  37. ASPARAGINASE [Suspect]
     Active Substance: ASPARAGINASE
     Route: 042
     Dates: start: 20160627
  38. ETOPOSIDE. [Suspect]
     Active Substance: ETOPOSIDE
     Route: 042
     Dates: start: 20160206, end: 20160208
  39. DOXORUBICIN [Suspect]
     Active Substance: DOXORUBICIN
     Route: 042
     Dates: start: 20160303
  40. DOXORUBICIN [Suspect]
     Active Substance: DOXORUBICIN
     Route: 065
     Dates: start: 20160712
  41. DOXORUBICIN [Suspect]
     Active Substance: DOXORUBICIN
     Route: 042
     Dates: start: 20160627
  42. VINCRISTINE [Suspect]
     Active Substance: VINCRISTINE
     Route: 042
     Dates: start: 20160712, end: 20160712
  43. VINCRISTINE [Suspect]
     Active Substance: VINCRISTINE
     Route: 042
     Dates: start: 20160324
  44. VINCRISTINE [Suspect]
     Active Substance: VINCRISTINE
     Route: 042
     Dates: start: 20151218
  45. VINCRISTINE [Suspect]
     Active Substance: VINCRISTINE
     Route: 042
     Dates: start: 20160310
  46. VINDESINE [Suspect]
     Active Substance: VINDESINE
     Route: 042
     Dates: start: 20160119, end: 20160119
  47. CYTARABINE. [Suspect]
     Active Substance: CYTARABINE
     Route: 042
     Dates: start: 20151026, end: 20151029
  48. ASPARAGINASE [Suspect]
     Active Substance: ASPARAGINASE
     Route: 042
     Dates: start: 20160630
  49. DOXORUBICIN [Suspect]
     Active Substance: DOXORUBICIN
     Route: 042
     Dates: start: 20160712
  50. METHOTREXATE. [Suspect]
     Active Substance: METHOTREXATE
     Route: 042
     Dates: start: 20160114, end: 20160115
  51. VINCRISTINE [Suspect]
     Active Substance: VINCRISTINE
     Route: 042
     Dates: start: 20160704
  52. VINCRISTINE [Suspect]
     Active Substance: VINCRISTINE
     Route: 042
     Dates: start: 20160627
  53. PURIXAN [Suspect]
     Active Substance: MERCAPTOPURINE
     Indication: PRODUCT USED FOR UNKNOWN INDICATION
     Route: 048
  54. IMATINIB MESYLATE. [Suspect]
     Active Substance: IMATINIB MESYLATE
     Route: 048
     Dates: start: 20150921, end: 20170307
  55. CYTARABINE. [Suspect]
     Active Substance: CYTARABINE
     Route: 042
     Dates: start: 20151019, end: 20151222
  56. CYTARABINE. [Suspect]
     Active Substance: CYTARABINE
     Route: 037
     Dates: start: 20160208, end: 20160208
  57. DAUNORUBICIN [Suspect]
     Active Substance: DAUNORUBICIN
     Route: 042
     Dates: start: 20160118, end: 20160119
  58. ASPARAGINASE [Suspect]
     Active Substance: ASPARAGINASE
     Route: 042
     Dates: start: 20160303
  59. ASPARAGINASE [Suspect]
     Active Substance: ASPARAGINASE
     Route: 042
  60. DOXORUBICIN [Suspect]
     Active Substance: DOXORUBICIN
     Route: 042
     Dates: start: 20160620
  61. DOXORUBICIN [Suspect]
     Active Substance: DOXORUBICIN
     Route: 042
     Dates: start: 20160310
  62. CYCLOPHOSPHAMIDE. [Suspect]
     Active Substance: CYCLOPHOSPHAMIDE
     Route: 042
     Dates: start: 20151219, end: 20151221
  63. VINCRISTINE [Suspect]
     Active Substance: VINCRISTINE
     Route: 042
     Dates: start: 20160303, end: 20160303
  64. VINCRISTINE [Suspect]
     Active Substance: VINCRISTINE
     Route: 042
     Dates: start: 20160317
  65. IFOSFAMIDE. [Suspect]
     Active Substance: IFOSFAMIDE
     Route: 065

REACTIONS (12)
  - Febrile neutropenia [Recovered/Resolved]
  - Muscular weakness [Unknown]
  - Urinary tract infection [Unknown]
  - Hypoxia [Unknown]
  - Pyrexia [Recovered/Resolved]
  - Pruritus [Unknown]
  - Neutropenia [Recovered/Resolved]
  - Stomatitis [Unknown]
  - Upper respiratory tract infection [Recovered/Resolved]
  - Lymphopenia [Unknown]
  - Infectious colitis [Unknown]
  - Constipation [Unknown]

NARRATIVE: CASE EVENT DATE: 20151110
